FAERS Safety Report 22535437 (Version 3)
Quarter: 2023Q4

REPORT INFORMATION
  Report Type: Spontaneous
  Country: US (occurrence: US)
  Receive Date: 20230608
  Receipt Date: 20231117
  Transmission Date: 20240110
  Serious: No
  Sender: FDA-Public Use
  Company Number: US-BAYER-2023A076882

PATIENT
  Age: 45 Year
  Sex: Female

DRUGS (1)
  1. CLIMARA [Suspect]
     Active Substance: ESTRADIOL
     Indication: Hormone therapy
     Dosage: UNK
     Route: 062
     Dates: start: 20230512

REACTIONS (5)
  - Drug ineffective [None]
  - Nausea [None]
  - Feeding disorder [None]
  - Hormone level abnormal [None]
  - Product availability issue [None]
